FAERS Safety Report 17817223 (Version 1)
Quarter: 2020Q2

REPORT INFORMATION
  Report Type: Spontaneous
  Country: BR (occurrence: BR)
  Receive Date: 20200522
  Receipt Date: 20200522
  Transmission Date: 20200714
  Serious: Yes (Hospitalization)
  Sender: FDA-Public Use
  Company Number: BR-PFIZER INC-2020197442

PATIENT
  Age: 65 Year
  Sex: Female
  Weight: 76 kg

DRUGS (31)
  1. CRESTOR [Concomitant]
     Active Substance: ROSUVASTATIN CALCIUM
     Dosage: 20 MG, 1X/DAY
     Route: 048
     Dates: start: 20200413, end: 20200426
  2. NIQUITIN [NICOTINE] [Concomitant]
     Dosage: 21 MG, 1X/DAY
     Route: 061
     Dates: start: 20200413, end: 20200426
  3. ANSENTRON [Concomitant]
     Active Substance: ONDANSETRON HYDROCHLORIDE
     Dosage: 4 MG
     Route: 042
     Dates: start: 20200417, end: 20200417
  4. SUSTRATE [Concomitant]
     Active Substance: PROPATYL NITRATE
     Dosage: 50 MG, 2X/DAY
  5. CETOPROFENO [KETOPROFEN] [Concomitant]
     Dosage: 100 MG
     Route: 042
     Dates: start: 20200416, end: 20200416
  6. NOVALGINA [Concomitant]
     Active Substance: METAMIZOLE SODIUM
     Dosage: 1 G EVERY 6 H, AS NEEDED
     Route: 042
     Dates: start: 20200413, end: 20200424
  7. PLAVIX [Concomitant]
     Active Substance: CLOPIDOGREL BISULFATE
     Dosage: 75 MG, 1X/DAY
     Route: 048
     Dates: start: 20200413, end: 20200426
  8. LOSARTANA POTASSICA [Concomitant]
     Active Substance: LOSARTAN
     Dosage: 50 MG, 2X/DAY
  9. CONCOR [Concomitant]
     Active Substance: BISOPROLOL FUMARATE
     Dosage: 2.5 MG, 2X/DAY EVERY 12H
     Route: 048
     Dates: start: 20200413, end: 20200426
  10. LEXAPRO [Concomitant]
     Active Substance: ESCITALOPRAM OXALATE
     Dosage: 10 MG, 1X/DAY
     Route: 048
     Dates: start: 20200413, end: 20200426
  11. STILNOX [Concomitant]
     Active Substance: ZOLPIDEM TARTRATE
     Dosage: 10 MG, 1X/DAY
     Route: 048
     Dates: start: 20200413, end: 20200426
  12. AEROLIN [Concomitant]
     Active Substance: ALBUTEROL
     Dosage: 2 PUFF
     Route: 045
  13. FRONTAL [Suspect]
     Active Substance: ALPRAZOLAM
     Dosage: 0.25 MG IN THE AFTERNOON
     Route: 048
     Dates: start: 20200412, end: 20200416
  14. INSULINA NPH [Concomitant]
     Active Substance: INSULIN HUMAN
     Dosage: 20 IU, 2X/DAY
  15. LACTULONA [Concomitant]
     Dosage: 20 ML, 3X/DAY
     Route: 048
     Dates: start: 20200417, end: 20200426
  16. FRONTAL [Suspect]
     Active Substance: ALPRAZOLAM
     Indication: ANXIETY
     Dosage: 0.25 MG IN THE MORNING
     Route: 048
     Dates: start: 20200412, end: 20200416
  17. AAS [Concomitant]
     Active Substance: ASPIRIN
     Dosage: 100 MG, 1X/DAY AT THE AFTERNOON
     Route: 048
     Dates: start: 20200413, end: 20200425
  18. DIMORF [Concomitant]
     Active Substance: MORPHINE SULFATE
     Dosage: 3 MG
     Route: 042
     Dates: start: 20200416, end: 20200417
  19. LUFTAL [SIMETICONE] [Concomitant]
     Dosage: 40 DROPS, 3X/DAY
     Route: 048
     Dates: start: 20200417, end: 20200426
  20. FRONTAL [Suspect]
     Active Substance: ALPRAZOLAM
     Dosage: 0.5 MG AT NIGHT, 1X/DAY
     Route: 048
     Dates: start: 20200412, end: 20200416
  21. ROSUVASTATIN CALCIUM. [Concomitant]
     Active Substance: ROSUVASTATIN CALCIUM
     Dosage: 10 MG AT NIGHT
  22. DIMORF [Concomitant]
     Active Substance: MORPHINE SULFATE
     Dosage: 2 MG
     Route: 042
     Dates: start: 20200417, end: 20200423
  23. GALVUS [Concomitant]
     Active Substance: VILDAGLIPTIN
     Dosage: 50 MG, 2X/DAY EVERY 12 H
     Route: 048
     Dates: start: 20200413, end: 20200426
  24. MIOSAN [Concomitant]
     Active Substance: CYCLOBENZAPRINE
     Dosage: 5 MG, 2X/DAY
     Route: 048
     Dates: start: 20200416, end: 20200416
  25. PANTOZOLE [Concomitant]
     Active Substance: PANTOPRAZOLE SODIUM
     Dosage: 40 MG, 1X/DAY
     Route: 048
     Dates: start: 20200413, end: 20200426
  26. TAZOCIN [Concomitant]
     Active Substance: PIPERACILLIN SODIUM\TAZOBACTAM SODIUM
     Dosage: 4.5 G EVERY 6 H
     Route: 042
     Dates: start: 20200416, end: 20200425
  27. CLEXANE [Concomitant]
     Active Substance: ENOXAPARIN SODIUM
     Dosage: 40 MG, 1X/DAY
     Route: 058
     Dates: start: 20200413, end: 20200426
  28. ONDANSETRON [Concomitant]
     Active Substance: ONDANSETRON
     Dosage: 8 MG
     Route: 042
     Dates: start: 20200416, end: 20200416
  29. LASIX [Concomitant]
     Active Substance: FUROSEMIDE
     Dosage: 40 MG
     Route: 042
     Dates: start: 20200416, end: 20200424
  30. JANUMET [Concomitant]
     Active Substance: METFORMIN HYDROCHLORIDE\SITAGLIPTIN PHOSPHATE
     Dosage: 50 MG, 2X/DAY
  31. METFORMIN [Concomitant]
     Active Substance: METFORMIN HYDROCHLORIDE
     Dosage: 850 MG, 1X/DAY
     Route: 048
     Dates: start: 20200414, end: 20200425

REACTIONS (20)
  - Hyperhidrosis [Recovered/Resolved]
  - Headache [Recovered/Resolved]
  - Insomnia [Recovered/Resolved]
  - Epigastric discomfort [Recovered/Resolved]
  - Nausea [Recovered/Resolved]
  - Neck pain [Recovered/Resolved]
  - Toxicity to various agents [Recovered/Resolved]
  - Anxiety [Recovered/Resolved]
  - C-reactive protein increased [Unknown]
  - Cough [Recovered/Resolved]
  - Chest pain [Recovered/Resolved]
  - Decreased activity [Recovered/Resolved]
  - Vomiting [Recovered/Resolved]
  - Hypoxia [Recovered/Resolved]
  - Dyspnoea [Recovered/Resolved]
  - Somnolence [Recovered/Resolved]
  - Wheezing [Unknown]
  - Blood glucose increased [Unknown]
  - Agitation [Recovered/Resolved]
  - Oxygen saturation decreased [Recovered/Resolved]

NARRATIVE: CASE EVENT DATE: 202004
